FAERS Safety Report 9158692 (Version 2)
Quarter: 2013Q2

REPORT INFORMATION
  Report Type: Spontaneous
  Country: IT (occurrence: IT)
  Receive Date: 20130312
  Receipt Date: 20130419
  Transmission Date: 20140414
  Serious: Yes (Hospitalization)
  Sender: FDA-Public Use
  Company Number: IT-CELGENEUS-083-20785-13030017

PATIENT
  Age: 63 Year
  Sex: Male
  Weight: 77 kg

DRUGS (2)
  1. THALIDOMIDE CELGENE [Suspect]
     Indication: HEREDITARY HAEMORRHAGIC TELANGIECTASIA
     Dosage: 50 MILLIGRAM
     Route: 048
     Dates: start: 20121019, end: 20130116
  2. THALIDOMIDE CELGENE [Suspect]
     Indication: OFF LABEL USE

REACTIONS (1)
  - Peripheral ischaemia [Recovering/Resolving]
